FAERS Safety Report 11242497 (Version 1)
Quarter: 2015Q3

REPORT INFORMATION
  Report Type: Spontaneous
  Country: US (occurrence: None)
  Receive Date: 20150701
  Receipt Date: 20150701
  Transmission Date: 20151125
  Serious: Yes (Life-Threatening, Hospitalization)
  Sender: FDA-Public Use
  Company Number: None

PATIENT
  Age: 32 Year
  Sex: Male
  Weight: 80.29 kg

DRUGS (31)
  1. CLOBETASOL (TEMOVATE) [Concomitant]
  2. IBUPROFEN. [Concomitant]
     Active Substance: IBUPROFEN
  3. FERROUS SULFATE [Concomitant]
     Active Substance: FERROUS SULFATE\FERROUS SULFATE, DRIED
  4. HALOPERIDOL. [Concomitant]
     Active Substance: HALOPERIDOL
  5. METFORMIN [Concomitant]
     Active Substance: METFORMIN HYDROCHLORIDE
  6. CHOLECALCIFEROL [Concomitant]
     Active Substance: CHOLECALCIFEROL
  7. SINGULAIR [Concomitant]
     Active Substance: MONTELUKAST SODIUM
  8. ASCORBIC ACID. [Concomitant]
     Active Substance: ASCORBIC ACID
  9. ASENAPINE [Concomitant]
     Active Substance: ASENAPINE
  10. RIVAROXABAN 20 MG JANSSEN [Suspect]
     Active Substance: RIVAROXABAN
     Indication: PULMONARY EMBOLISM
     Route: 048
  11. SKELAXIN [Concomitant]
     Active Substance: METAXALONE
  12. SIMVASTATIN. [Concomitant]
     Active Substance: SIMVASTATIN
  13. ALBUTEROL NEDS [Concomitant]
  14. OXYCODONE/APAP (PERCOCET) [Concomitant]
  15. ALBUTEROL (PROAIR HFA) [Concomitant]
  16. TEMAZEPAM. [Concomitant]
     Active Substance: TEMAZEPAM
  17. MACROCRYSTAL-MONOHYDRATE (MOACROBID) [Concomitant]
  18. SILDENAFIL (VIAGRA) [Concomitant]
  19. LITHIUM (ESKALITH) [Concomitant]
  20. RIVAROXABAN 20 MG JANSSEN [Suspect]
     Active Substance: RIVAROXABAN
     Indication: DEEP VEIN THROMBOSIS
     Route: 048
  21. LEVAQUIN [Concomitant]
     Active Substance: LEVOFLOXACIN
  22. NITROFURANTOIN. [Concomitant]
     Active Substance: NITROFURANTOIN
  23. FLUTICASONE-SALMETEROL (ADVAIR DISKUS) [Concomitant]
  24. ALPRAZOLAM(XANAX) [Concomitant]
  25. LOSARTAN. [Concomitant]
     Active Substance: LOSARTAN
  26. PANTOPRAZOLE [Concomitant]
     Active Substance: PANTOPRAZOLE SODIUM
  27. AMPETAMINE-DEXTRAMPHETAMINE (ADDERALL) [Concomitant]
  28. AZELASTINE (OPTIVAR) [Concomitant]
  29. MECLIZINE [Concomitant]
     Active Substance: MECLIZINE\MECLIZINE HYDROCHLORIDE
  30. GABAPENTIN. [Concomitant]
     Active Substance: GABAPENTIN
  31. LANTUS [Concomitant]
     Active Substance: INSULIN GLARGINE

REACTIONS (8)
  - Epistaxis [None]
  - Medication error [None]
  - Acute kidney injury [None]
  - Dehydration [None]
  - Abdominal discomfort [None]
  - Abdominal pain [None]
  - Haematuria [None]
  - Haemoglobin decreased [None]

NARRATIVE: CASE EVENT DATE: 20150617
